FAERS Safety Report 16680448 (Version 1)
Quarter: 2019Q3

REPORT INFORMATION
  Report Type: Spontaneous
  Country: GB (occurrence: GB)
  Receive Date: 20190807
  Receipt Date: 20190807
  Transmission Date: 20191004
  Serious: Yes (Other)
  Sender: FDA-Public Use
  Company Number: GB-TEVA-2019-GB-1088886

PATIENT
  Age: 86 Year
  Sex: Female

DRUGS (1)
  1. TRIMETHOPRIM. [Suspect]
     Active Substance: TRIMETHOPRIM
     Indication: URINARY TRACT INFECTION
     Route: 065

REACTIONS (2)
  - Documented hypersensitivity to administered product [Unknown]
  - Pemphigoid [Unknown]

NARRATIVE: CASE EVENT DATE: 20180929
